FAERS Safety Report 17212044 (Version 1)
Quarter: 2019Q4

REPORT INFORMATION
  Report Type: Spontaneous
  Country: US (occurrence: US)
  Receive Date: 20191230
  Receipt Date: 20191230
  Transmission Date: 20200122
  Serious: Yes (Other)
  Sender: FDA-Public Use
  Company Number: US-TEVA-2019-US-1160079

PATIENT
  Age: 32 Day
  Sex: Male

DRUGS (5)
  1. DIAZOXIDE [Suspect]
     Active Substance: DIAZOXIDE
     Indication: BECKWITH-WIEDEMANN SYNDROME
     Dosage: IN THREE DIVIDED DOSES
     Route: 065
  2. DIAZOXIDE [Suspect]
     Active Substance: DIAZOXIDE
     Dosage: IN THREE DIVIDED DOSES
     Route: 065
  3. DIAZOXIDE [Suspect]
     Active Substance: DIAZOXIDE
     Dosage: IN THREE DIVIDED DOSES
     Route: 065
  4. DIAZOXIDE [Suspect]
     Active Substance: DIAZOXIDE
     Dosage: IN THREE DIVIDED DOSES
     Route: 065
  5. DIAZOXIDE [Suspect]
     Active Substance: DIAZOXIDE
     Dosage: IN THREE DIVIDED DOSES
     Route: 065

REACTIONS (1)
  - Necrotising colitis [Recovered/Resolved]
